FAERS Safety Report 7047232-4 (Version None)
Quarter: 2010Q4

REPORT INFORMATION
  Report Type: 
  Country: None (occurrence: None)
  Receive Date: 20101015
  Receipt Date: 20101006
  Transmission Date: 20110411
  Serious: Yes (Other)
  Sender: FDA-Public Use
  Company Number: MX-ROCHE-717182

PATIENT
  Sex: Female
  Weight: 73 kg

DRUGS (21)
  1. TOCILIZUMAB [Suspect]
     Indication: RHEUMATOID ARTHRITIS
     Dosage: TOTAL MONTHLY:584 MG, DOSE PRIOR TO SAE WAS 23 JUNE 2010 TEMPORARILY DISCONTINUED , FORM :INFUSION
     Route: 042
     Dates: start: 20050817, end: 20100624
  2. TOCILIZUMAB [Suspect]
     Dosage: DOSE INTERRUPTED
     Route: 042
     Dates: end: 20100714
  3. TOCILIZUMAB [Suspect]
     Route: 042
     Dates: start: 20100908
  4. BLINDED TOCILIZUMAB [Suspect]
     Indication: RHEUMATOID ARTHRITIS
     Dosage: PATIENT WAS PREVIOUSLY ENROLLED IN STUDY WA17822
     Route: 042
  5. CAPTOPRIL [Concomitant]
     Dates: start: 20011122, end: 20060925
  6. METOPROLOL [Concomitant]
     Dates: start: 20050120
  7. CALCIUM [Concomitant]
     Dates: start: 20050719
  8. CELECOXIB [Concomitant]
     Dates: start: 20060411
  9. DICLOFENAC SODIUM [Concomitant]
     Route: 048
     Dates: start: 20070201
  10. DICLOFENAC SODIUM [Concomitant]
     Route: 048
     Dates: start: 20100519, end: 20100727
  11. PREDNISOLONE [Concomitant]
     Dates: start: 20091026
  12. PREDNISOLONE [Concomitant]
     Dates: start: 20100127, end: 20100727
  13. DIOVAN HCT [Concomitant]
     Dosage: VAISARTAN 160 MG
     Dates: start: 20090305
  14. AMLODIPINE [Concomitant]
     Dates: start: 20090225
  15. SOMALGESIC [Concomitant]
     Dosage: CARISOPRODOL 200 MG
     Dates: start: 20090225
  16. SOMALGESIC [Concomitant]
     Dates: start: 20100624
  17. ANAPSIQUE [Concomitant]
     Dates: start: 20100617
  18. AZULFIDINE [Concomitant]
     Dates: start: 20100717, end: 20100717
  19. AZULFIDINE [Concomitant]
     Dates: start: 20100902
  20. BETAMETASON [Concomitant]
     Dates: start: 20100902, end: 20100902
  21. PARACETAMOL [Concomitant]
     Dates: start: 20100728, end: 20100901

REACTIONS (1)
  - LARGE INTESTINAL ULCER [None]
